FAERS Safety Report 6251617-3 (Version None)
Quarter: 2009Q2

REPORT INFORMATION
  Report Type: 
  Country: None (occurrence: None)
  Receive Date: 20090626
  Receipt Date: 20090626
  Transmission Date: 20091009
  Serious: Yes (Other)
  Sender: FDA-Public Use
  Company Number: None

PATIENT
  Age: 42 Year
  Sex: Female
  Weight: 112.0385 kg

DRUGS (4)
  1. ZICAM COUGH MIST PLUS D MATRIXX INITIATIVES [Suspect]
     Indication: COUGH
     Dosage: 3 SPRAYS EVRY 4 HOURS PO; USED FOR ABOUT 3 -4 DAYS
     Route: 048
     Dates: start: 20080201, end: 20080204
  2. ZICAM COUGH MIST PLUS D MATRIXX INITIATIVES [Suspect]
     Indication: NASOPHARYNGITIS
     Dosage: 3 SPRAYS EVRY 4 HOURS PO; USED FOR ABOUT 3 -4 DAYS
     Route: 048
     Dates: start: 20080201, end: 20080204
  3. ZICAM COUGH MIST PLUS D MATRIXX INITIATIVES [Suspect]
     Indication: OROPHARYNGEAL PAIN
     Dosage: 3 SPRAYS EVRY 4 HOURS PO; USED FOR ABOUT 3 -4 DAYS
     Route: 048
     Dates: start: 20080201, end: 20080204
  4. ZICAM COUGH MIST PLUS D MATRIXX INITIATIVES [Suspect]
     Indication: RHINORRHOEA
     Dosage: 3 SPRAYS EVRY 4 HOURS PO; USED FOR ABOUT 3 -4 DAYS
     Route: 048
     Dates: start: 20080201, end: 20080204

REACTIONS (2)
  - AGEUSIA [None]
  - ANOSMIA [None]
